FAERS Safety Report 5960248-1 (Version None)
Quarter: 2008Q4

REPORT INFORMATION
  Report Type: 
  Country: None (occurrence: None)
  Receive Date: 20081119
  Receipt Date: 20081119
  Transmission Date: 20090506
  Serious: Yes (Life-Threatening, Hospitalization)
  Sender: FDA-Public Use
  Company Number: None

PATIENT
  Age: 20 Year
  Sex: Female
  Weight: 57 kg

DRUGS (3)
  1. ACETAMINOPHEN [Suspect]
     Indication: OVERDOSE
     Dosage: 32500 MG ONCE PO
     Route: 048
     Dates: start: 20080315
  2. ESCITALOPRAM [Concomitant]
  3. IBUPROFEN TABLETS [Concomitant]

REACTIONS (5)
  - ALANINE AMINOTRANSFERASE INCREASED [None]
  - ASPARTATE AMINOTRANSFERASE INCREASED [None]
  - OVERDOSE [None]
  - SUICIDE ATTEMPT [None]
  - VOMITING [None]
